FAERS Safety Report 19507113 (Version 1)
Quarter: 2021Q3

REPORT INFORMATION
  Report Type: Report from Study
  Country: MY (occurrence: MY)
  Receive Date: 20210708
  Receipt Date: 20210708
  Transmission Date: 20211014
  Serious: Yes (Other)
  Sender: FDA-Public Use
  Company Number: NVSC2020MY254446

PATIENT
  Age: 68 Year
  Sex: Female

DRUGS (1)
  1. ROTAQOR 10MG FILM COATED TABLETS [Suspect]
     Active Substance: ATORVASTATIN CALCIUM
     Indication: HYPERCHOLESTEROLAEMIA
     Dosage: 10 MG
     Route: 048

REACTIONS (2)
  - Transient ischaemic attack [Unknown]
  - Diabetes mellitus [Unknown]
